FAERS Safety Report 6639900-0 (Version None)
Quarter: 2010Q1

REPORT INFORMATION
  Report Type: 
  Country: None (occurrence: None)
  Receive Date: 20100315
  Receipt Date: 20100305
  Transmission Date: 20100710
  Serious: Yes (Hospitalization)
  Sender: FDA-Public Use
  Company Number: WAES 1003USA00883

PATIENT
  Age: 65 Year
  Sex: Female

DRUGS (5)
  1. SINGULAIR [Suspect]
     Indication: ASTHMA
     Dosage: 10 MG DAILY PO
     Route: 048
  2. ANASTRAZOLE [Suspect]
     Indication: BREAST CANCER
     Dosage: 1 MG DAILY
     Dates: start: 20060121
  3. FLUTIDE [Concomitant]
  4. SEREVENT [Concomitant]
  5. HORMONES (UNSPECIFIED) [Concomitant]

REACTIONS (3)
  - EXCESSIVE GRANULATION TISSUE [None]
  - POST PROCEDURAL HAEMATOMA [None]
  - WOUND HAEMORRHAGE [None]
